FAERS Safety Report 4449334-5 (Version None)
Quarter: 2004Q3

REPORT INFORMATION
  Report Type: 
  Country: None (occurrence: None)
  Receive Date: 20040910
  Receipt Date: 20040827
  Transmission Date: 20050211
  Serious: Yes (Hospitalization)
  Sender: FDA-Public Use
  Company Number: 8006849

PATIENT
  Age: 39 Year
  Sex: Male

DRUGS (4)
  1. KEPPRA [Suspect]
     Indication: COMPLEX PARTIAL SEIZURES
     Dates: start: 20030203, end: 20040101
  2. KEPPRA [Suspect]
     Indication: COMPLEX PARTIAL SEIZURES
     Dosage: 1500 MG 2/D
     Dates: start: 20040101, end: 20040601
  3. KEPPRA [Suspect]
     Indication: COMPLEX PARTIAL SEIZURES
     Dosage: 3250 MG
     Dates: start: 20040601, end: 20040701
  4. KEPPRA [Suspect]
     Indication: COMPLEX PARTIAL SEIZURES
     Dosage: 3250 MG
     Dates: start: 20040701

REACTIONS (2)
  - CONDITION AGGRAVATED [None]
  - CONVULSION [None]
